FAERS Safety Report 8387739-0 (Version None)
Quarter: 2012Q2

REPORT INFORMATION
  Report Type: 
  Country: None (occurrence: None)
  Receive Date: 20120525
  Receipt Date: 20100929
  Transmission Date: 20120825
  Serious: Yes (Other)
  Sender: FDA-Public Use
  Company Number: BR-GLAXOSMITHKLINE-A0884588A

PATIENT
  Sex: Female
  Weight: 94 kg

DRUGS (4)
  1. DIOVAN [Concomitant]
     Dosage: 1TAB PER DAY
     Route: 048
     Dates: start: 20120416
  2. DAFLON [Concomitant]
     Dosage: 1TAB TWICE PER DAY
     Route: 048
     Dates: start: 19950101
  3. FLUTICASONE PROPIONATE/SALMETEROL [Suspect]
     Indication: ALLERGIC RESPIRATORY DISEASE
     Dosage: 1PUFF TWICE PER DAY
     Route: 055
     Dates: start: 20070101
  4. ENALAPRIL MALEATE [Concomitant]
     Dosage: 20MG TWICE PER DAY
     Route: 048
     Dates: start: 20100804

REACTIONS (3)
  - WEIGHT INCREASED [None]
  - RESPIRATORY DISORDER [None]
  - ASTHMATIC CRISIS [None]
